FAERS Safety Report 5029425-0 (Version None)
Quarter: 2006Q2

REPORT INFORMATION
  Report Type: 
  Country: None (occurrence: None)
  Receive Date: 20060613
  Receipt Date: 20060602
  Transmission Date: 20061013
  Serious: Yes (Life-Threatening, Hospitalization)
  Sender: FDA-Public Use
  Company Number: GXKR2006BJ03168

PATIENT
  Sex: 0

DRUGS (4)
  1. RIFAMPICIN [Suspect]
  2. ISONIAZID [Suspect]
  3. ETHAMBUTOL [Concomitant]
  4. PYRAZINAMIDE [Concomitant]

REACTIONS (1)
  - TOXIC EPIDERMAL NECROLYSIS [None]
